FAERS Safety Report 16987566 (Version 1)
Quarter: 2019Q4

REPORT INFORMATION
  Report Type: Spontaneous
  Country: NG (occurrence: NG)
  Receive Date: 20191103
  Receipt Date: 20191103
  Transmission Date: 20200122
  Serious: Yes (Disabling)
  Sender: FDA-Public Use
  Company Number: NVSC2019NG022593

PATIENT
  Age: 27 Year
  Sex: Female

DRUGS (1)
  1. OPATANOL [Suspect]
     Active Substance: OLOPATADINE
     Indication: CONJUNCTIVITIS ALLERGIC
     Dosage: UNK, BID
     Route: 061

REACTIONS (2)
  - Visual impairment [Recovering/Resolving]
  - Pterygium [Recovering/Resolving]

NARRATIVE: CASE EVENT DATE: 20191022
